FAERS Safety Report 9436631 (Version 1)
Quarter: 2013Q3

REPORT INFORMATION
  Report Type: Spontaneous
  Country: US (occurrence: None)
  Receive Date: 20130801
  Receipt Date: 20130801
  Transmission Date: 20140515
  Serious: Yes (Other)
  Sender: FDA-Public Use
  Company Number: None

PATIENT
  Age: 3 Year
  Sex: Female

DRUGS (10)
  1. CREON [Suspect]
     Indication: CYSTIC FIBROSIS
     Dosage: I PILL WITH EACH MEAL 3X^S A DAY
     Dates: start: 20120101, end: 20130724
  2. ALBUTEROL [Concomitant]
  3. HYPERTONIC SALINE [Concomitant]
  4. PULMOZYME [Concomitant]
  5. ZITHROMAX [Concomitant]
  6. ZEN PEP [Concomitant]
  7. AQUADEKS [Concomitant]
  8. PREVACID [Concomitant]
  9. NEBULIZER [Concomitant]
  10. SMART YEAST [Concomitant]

REACTIONS (3)
  - Haematochezia [None]
  - Steatorrhoea [None]
  - Weight decreased [None]
